FAERS Safety Report 20138763 (Version 1)
Quarter: 2021Q4

REPORT INFORMATION
  Report Type: Report from Study
  Country: NL (occurrence: NL)
  Receive Date: 20211202
  Receipt Date: 20211202
  Transmission Date: 20220303
  Serious: Yes (Other)
  Sender: FDA-Public Use
  Company Number: NL-NOVARTISPH-NVSC2021NL269341

PATIENT
  Age: 88 Year
  Sex: Female

DRUGS (3)
  1. OCTREOTIDE ACETATE [Suspect]
     Active Substance: OCTREOTIDE ACETATE
     Indication: Acromegaly
     Dosage: 1.00 X 4 WEEKS (STRENGTH: 10 MG SOLV 2 ML)
     Route: 030
  2. OCTREOTIDE ACETATE [Suspect]
     Active Substance: OCTREOTIDE ACETATE
  3. OCTREOTIDE ACETATE [Suspect]
     Active Substance: OCTREOTIDE ACETATE

REACTIONS (3)
  - Transient ischaemic attack [Unknown]
  - Speech disorder [Unknown]
  - Malaise [Recovered/Resolved]

NARRATIVE: CASE EVENT DATE: 20211123
